FAERS Safety Report 5841118-6 (Version None)
Quarter: 2008Q3

REPORT INFORMATION
  Report Type: 
  Country: None (occurrence: None)
  Receive Date: 20080807
  Receipt Date: 20080807
  Transmission Date: 20090109
  Serious: Yes (Other)
  Sender: FDA-Public Use
  Company Number: None

PATIENT
  Sex: Male

DRUGS (1)
  1. AVELOX [Suspect]
     Dosage: 400MG DAILY IV  PARTIAL DOSE
     Route: 042
     Dates: start: 20080722, end: 20080722

REACTIONS (3)
  - HYPERHIDROSIS [None]
  - NAUSEA [None]
  - PRURITUS [None]
